FAERS Safety Report 6640545-7 (Version None)
Quarter: 2010Q1

REPORT INFORMATION
  Report Type: 
  Country: None (occurrence: None)
  Receive Date: 20100318
  Receipt Date: 20100308
  Transmission Date: 20100710
  Serious: Yes (Other)
  Sender: FDA-Public Use
  Company Number: US-PFIZER INC-2010031443

PATIENT
  Sex: Female
  Weight: 45 kg

DRUGS (2)
  1. CORTEF [Suspect]
     Indication: SECONDARY ADRENOCORTICAL INSUFFICIENCY
     Dosage: 40 MG/DAY
     Dates: start: 20091224
  2. LORAZEPAM [Concomitant]
     Dosage: UNK

REACTIONS (3)
  - BLOOD CORTISOL DECREASED [None]
  - NAUSEA [None]
  - OEDEMA [None]
